FAERS Safety Report 5787776-6 (Version None)
Quarter: 2008Q2

REPORT INFORMATION
  Report Type: 
  Country: None (occurrence: None)
  Receive Date: 20080625
  Receipt Date: 20080613
  Transmission Date: 20081010
  Serious: Yes (Other)
  Sender: FDA-Public Use
  Company Number: PHHY2008JP05174

PATIENT
  Sex: Female
  Weight: 63 kg

DRUGS (8)
  1. DIOVAN [Suspect]
     Indication: HYPERTENSION
     Dosage: 80 MG/DAY
     Route: 048
     Dates: start: 20020730, end: 20040607
  2. DIOVAN [Suspect]
     Dosage: 80 MG/DAY
     Route: 048
     Dates: start: 20040618, end: 20050831
  3. DIOVAN [Suspect]
     Dosage: 40 MG/DAY
     Route: 048
     Dates: start: 20050901, end: 20071204
  4. DIOVAN [Suspect]
     Dosage: 80 MG/DAY
     Route: 048
     Dates: start: 20071205, end: 20080204
  5. HERBESSER [Concomitant]
     Indication: ANGINA PECTORIS
     Dosage: 60
     Route: 048
     Dates: start: 20020730, end: 20080514
  6. AMLODIPINE [Concomitant]
     Indication: BLOOD PRESSURE INCREASED
     Dosage: 2.5
     Route: 048
     Dates: start: 20050620
  7. AMLODIPINE [Concomitant]
     Indication: HYPERTENSION
     Dosage: 5
     Route: 048
     Dates: start: 20080204
  8. SELECTOL [Concomitant]
     Dosage: 100
     Route: 048
     Dates: start: 20080214, end: 20080514

REACTIONS (11)
  - BLOOD CHOLESTEROL INCREASED [None]
  - BLOOD CREATININE INCREASED [None]
  - BLOOD GLUCOSE INCREASED [None]
  - BLOOD TRIGLYCERIDES INCREASED [None]
  - C-REACTIVE PROTEIN INCREASED [None]
  - GAMMA-GLUTAMYLTRANSFERASE INCREASED [None]
  - GLOSSODYNIA [None]
  - INTRACRANIAL ANEURYSM [None]
  - LACUNAR INFARCTION [None]
  - MONOCYTE COUNT INCREASED [None]
  - RED BLOOD CELL COUNT DECREASED [None]
